FAERS Safety Report 9885462 (Version 1)
Quarter: 2014Q1

REPORT INFORMATION
  Report Type: Spontaneous
  Country: SK (occurrence: SK)
  Receive Date: 20140210
  Receipt Date: 20140210
  Transmission Date: 20141002
  Serious: Yes (Hospitalization)
  Sender: FDA-Public Use
  Company Number: SK-SA-2014SA015326

PATIENT
  Age: 28 Year
  Sex: Female

DRUGS (7)
  1. GUAIFENESIN [Suspect]
     Indication: TOCOLYSIS
     Route: 042
  2. MAGNESIUM (SALT NOT SPECIFIED) [Suspect]
     Indication: TOCOLYSIS
     Route: 042
  3. DIAZEPAM [Suspect]
     Indication: PRODUCT USED FOR UNKNOWN INDICATION
     Route: 048
  4. FUROSEMIDE [Suspect]
     Indication: DIURETIC THERAPY
     Route: 048
  5. VERAPAMIL HYDROCHLORIDE [Suspect]
     Indication: CARDIOVASCULAR EVENT PROPHYLAXIS
     Route: 065
  6. ADRENERGIC AGENTS, CARDIAC [Suspect]
     Indication: TOCOLYSIS
     Dosage: IV BOLUS : 0.3 MICROG/MIN
     Route: 042
  7. ADRENERGIC AGENTS, CARDIAC [Suspect]
     Indication: TOCOLYSIS
     Dosage: IV BOLUS : 25 MICROG/MIN
     Route: 042

REACTIONS (6)
  - Pulmonary oedema [Recovered/Resolved]
  - Chest pain [Recovered/Resolved]
  - Tachycardia [Recovered/Resolved]
  - Palpitations [Recovered/Resolved]
  - Exposure during pregnancy [Unknown]
  - Off label use [Unknown]
